FAERS Safety Report 21330464 (Version 1)
Quarter: 2022Q3

REPORT INFORMATION
  Report Type: Spontaneous
  Country: US (occurrence: None)
  Receive Date: 20220913
  Receipt Date: 20220913
  Transmission Date: 20221026
  Serious: Yes (Hospitalization, Disabling)
  Sender: FDA-Public Use
  Company Number: None

PATIENT
  Age: 48 Year
  Sex: Female
  Weight: 80.1 kg

DRUGS (4)
  1. OCRYLATE [Suspect]
     Active Substance: OCRYLATE
     Indication: Skin cosmetic procedure
     Dosage: OTHER ROUTE : APPLIED TO EYELASHES;?
     Route: 050
     Dates: start: 20220910, end: 20220910
  2. COSMETICS [Suspect]
     Active Substance: COSMETICS
     Indication: Skin cosmetic procedure
     Dates: start: 20220912, end: 20220912
  3. WELLBUTRIN [Concomitant]
     Active Substance: BUPROPION HYDROCHLORIDE
  4. ABILIFY [Concomitant]
     Active Substance: ARIPIPRAZOLE

REACTIONS (3)
  - Hypersensitivity [None]
  - Conjunctivitis [None]
  - Feeling abnormal [None]

NARRATIVE: CASE EVENT DATE: 20220912
